FAERS Safety Report 23339744 (Version 1)
Quarter: 2023Q4

REPORT INFORMATION
  Report Type: Spontaneous
  Country: JP (occurrence: JP)
  Receive Date: 20231226
  Receipt Date: 20231226
  Transmission Date: 20240109
  Serious: Yes (Other)
  Sender: FDA-Public Use
  Company Number: JP-NEUROCRINE BIOSCIENCES INC.-2023NBI11179

PATIENT
  Age: 50 Year
  Sex: Female

DRUGS (3)
  1. VALBENAZINE [Suspect]
     Active Substance: VALBENAZINE
     Indication: Tardive dyskinesia
     Dosage: 40 MILLIGRAM, QD
     Route: 048
  2. INVEGA [Concomitant]
     Active Substance: PALIPERIDONE
     Indication: Product used for unknown indication
     Dosage: UNK, UNKNOWN
     Route: 065
  3. REXULTI [Concomitant]
     Active Substance: BREXPIPRAZOLE
     Indication: Product used for unknown indication
     Dosage: UNK, UNKNOWN
     Route: 065

REACTIONS (1)
  - Tardive dyskinesia [Recovered/Resolved]
